FAERS Safety Report 17728915 (Version 1)
Quarter: 2020Q2

REPORT INFORMATION
  Report Type: Report from Study
  Country: None (occurrence: DE)
  Receive Date: 20200430
  Receipt Date: 20200430
  Transmission Date: 20200714
  Serious: Yes (Congenital Anomaly, Other)
  Sender: FDA-Public Use
  Company Number: DE-MICRO LABS LIMITED-ML2020-01430

PATIENT
  Sex: Female
  Weight: 3.87 kg

DRUGS (4)
  1. PREDNISONE. [Suspect]
     Active Substance: PREDNISONE
     Dosage: ROUTE: TRANSEMINAL
  2. CERTOLIZUMAB PEGOL [Suspect]
     Active Substance: CERTOLIZUMAB PEGOL
     Dosage: ROUTE: TRANSEMINAL
  3. DICLOFENAC [Suspect]
     Active Substance: DICLOFENAC
     Dosage: ROUTE: TRANSEMINAL
  4. METHOTREXATE. [Suspect]
     Active Substance: METHOTREXATE
     Dosage: ROUTE: TRANSEMINAL

REACTIONS (2)
  - Congenital central nervous system anomaly [Unknown]
  - Paternal exposure during pregnancy [Unknown]
